FAERS Safety Report 7355584-0 (Version None)
Quarter: 2011Q1

REPORT INFORMATION
  Report Type: 
  Country: None (occurrence: None)
  Receive Date: 20110316
  Receipt Date: 20110310
  Transmission Date: 20110831
  Serious: Yes (Hospitalization)
  Sender: FDA-Public Use
  Company Number: B0700512A

PATIENT
  Age: 67 Year
  Sex: Male
  Weight: 94.5 kg

DRUGS (7)
  1. VYTORIN [Concomitant]
  2. ZEBETA [Concomitant]
  3. NORVASC [Concomitant]
  4. AVANDIA [Suspect]
     Indication: DIABETES MELLITUS
     Dosage: 4MG PER DAY
     Route: 048
     Dates: start: 20000101
  5. IMDUR [Concomitant]
  6. GLYBURIDE [Concomitant]
  7. PLAVIX [Concomitant]

REACTIONS (5)
  - CORONARY ARTERY BYPASS [None]
  - CORONARY ARTERY DISEASE [None]
  - CAROTID ARTERY STENOSIS [None]
  - MYOCARDIAL INFARCTION [None]
  - ATRIAL FLUTTER [None]
